FAERS Safety Report 23783516 (Version 1)
Quarter: 2024Q2

REPORT INFORMATION
  Report Type: Spontaneous
  Country: US (occurrence: None)
  Receive Date: 20240423
  Receipt Date: 20240423
  Transmission Date: 20240716
  Serious: Yes (Other)
  Sender: FDA-Public Use
  Company Number: None

PATIENT
  Age: 75 Year
  Sex: Male
  Weight: 75.75 kg

DRUGS (16)
  1. BUSPIRONE [Suspect]
     Active Substance: BUSPIRONE HYDROCHLORIDE
     Indication: Anxiety
     Dosage: FREQUENCY : 3 TIMES A DAY?
     Route: 048
     Dates: start: 20220917, end: 202305
  2. HERBALS\TURMERIC [Suspect]
     Active Substance: HERBALS\TURMERIC
  3. Ridge crest [Concomitant]
  4. VITAMINS [Concomitant]
     Active Substance: VITAMINS
  5. ARGININE [Concomitant]
     Active Substance: ARGININE
  6. Clinical OPC/French grape seed extract [Concomitant]
  7. Cloroxygen blood support [Concomitant]
  8. NOVOLOG [Concomitant]
     Active Substance: INSULIN ASPART
  9. OXYCODONE [Concomitant]
     Active Substance: OXYCODONE\OXYCODONE HYDROCHLORIDE
  10. CLOBETASOL [Concomitant]
     Active Substance: CLOBETASOL
  11. TRIAMCINOLONE ACETONIDE [Concomitant]
     Active Substance: TRIAMCINOLONE ACETONIDE
  12. Pen needles [Concomitant]
  13. Aug betamethasone dipropionate 0.05% lotion [Concomitant]
  14. ALPROSTADIL [Concomitant]
     Active Substance: ALPROSTADIL
  15. GLUCAGON [Concomitant]
     Active Substance: GLUCAGON\GLUCAGON HYDROCHLORIDE\WATER
  16. CLOSOXYGEN [Concomitant]

REACTIONS (19)
  - Insomnia [None]
  - Dizziness [None]
  - Contusion [None]
  - Headache [None]
  - Confusional state [None]
  - Depression [None]
  - Asthenia [None]
  - Chest discomfort [None]
  - Vision blurred [None]
  - Muscle spasms [None]
  - Coordination abnormal [None]
  - Gait disturbance [None]
  - Fatigue [None]
  - Somnolence [None]
  - Disturbance in attention [None]
  - Dyspnoea [None]
  - Fall [None]
  - Memory impairment [None]
  - Suicidal ideation [None]

NARRATIVE: CASE EVENT DATE: 20230505
